FAERS Safety Report 12438978 (Version 1)
Quarter: 2016Q2

REPORT INFORMATION
  Report Type: Spontaneous
  Country: JP (occurrence: JP)
  Receive Date: 20160606
  Receipt Date: 20160606
  Transmission Date: 20160815
  Serious: Yes (Other)
  Sender: FDA-Public Use
  Company Number: JP-CELGENEUS-JPN-2015072081

PATIENT

DRUGS (2)
  1. TS-1 [Suspect]
     Active Substance: GIMERACIL\OTERACIL\TEGAFUR
     Indication: GASTRIC CANCER
     Route: 048
  2. ABRAXANE [Suspect]
     Active Substance: PACLITAXEL
     Indication: GASTRIC CANCER
     Dosage: 180-260 MG/M2
     Route: 041

REACTIONS (26)
  - Diarrhoea [Unknown]
  - Nausea [Unknown]
  - Gastric cancer [Unknown]
  - Weight decreased [Unknown]
  - Decreased appetite [Unknown]
  - Neutropenia [Unknown]
  - Neuropathy peripheral [Unknown]
  - Stomatitis [Unknown]
  - Anaemia [Unknown]
  - Rash maculo-papular [Unknown]
  - Hyperkalaemia [Unknown]
  - Febrile neutropenia [Unknown]
  - Obstruction gastric [Unknown]
  - Lymphopenia [Unknown]
  - Skin hyperpigmentation [Unknown]
  - Dysgeusia [Unknown]
  - Enteritis infectious [Unknown]
  - Leukopenia [Unknown]
  - Arthralgia [Unknown]
  - Sepsis [Unknown]
  - Vomiting [Unknown]
  - Myalgia [Unknown]
  - Pyloric stenosis [Unknown]
  - Hip fracture [Unknown]
  - Fatigue [Unknown]
  - Alopecia [Unknown]
